FAERS Safety Report 11666567 (Version 2)
Quarter: 2015Q4

REPORT INFORMATION
  Report Type: Report from Study
  Country: US (occurrence: US)
  Receive Date: 20151027
  Receipt Date: 20151028
  Transmission Date: 20160304
  Serious: No
  Sender: FDA-Public Use
  Company Number: PHEH2014US018534

PATIENT
  Age: 74 Year
  Sex: Female

DRUGS (2)
  1. EXJADE [Suspect]
     Active Substance: DEFERASIROX
     Dosage: 1000 UNK, UNK
     Route: 048
     Dates: end: 20150424
  2. EXJADE [Suspect]
     Active Substance: DEFERASIROX
     Indication: SICKLE CELL ANAEMIA
     Dosage: 1000 MG, QD
     Route: 048
     Dates: start: 20131129

REACTIONS (3)
  - Formication [Unknown]
  - Wrong technique in product usage process [Unknown]
  - Pruritus [Unknown]

NARRATIVE: CASE EVENT DATE: 20140911
